FAERS Safety Report 18552843 (Version 2)
Quarter: 2020Q4

REPORT INFORMATION
  Report Type: Report from Study
  Country: US (occurrence: US)
  Receive Date: 20201127
  Receipt Date: 20201214
  Transmission Date: 20210114
  Serious: Yes (Hospitalization, Other)
  Sender: FDA-Public Use
  Company Number: US-AUROBINDO-AUR-APL-2020-058436

PATIENT
  Age: 8 Month
  Sex: Male
  Weight: 8.1 kg

DRUGS (7)
  1. EPINEPHRINE. [Suspect]
     Active Substance: EPINEPHRINE
     Indication: SPINAL ANAESTHESIA
     Dosage: UNK (1:200000)
     Route: 065
  2. EPINEPHRINE. [Suspect]
     Active Substance: EPINEPHRINE
     Dosage: 1 DOSAGE FORM (1 TOTAL)
     Route: 008
  3. MIDAZOLAM. [Suspect]
     Active Substance: MIDAZOLAM
     Indication: SPINAL ANAESTHESIA
     Dosage: 6 MILLIGRAM (1 TOTAL)
     Route: 048
  4. CLONIDINE. [Suspect]
     Active Substance: CLONIDINE
     Indication: SPINAL ANAESTHESIA
     Dosage: 8 MICROGRAM  (1 TOTAL)
     Route: 008
  5. MIDAZOLAM. [Suspect]
     Active Substance: MIDAZOLAM
     Indication: PREMEDICATION
  6. BUPIVACAINE HYDROCHLORIDE INJECTION USP 0.5% (5 MG/ML) [Suspect]
     Active Substance: BUPIVACAINE HYDROCHLORIDE
     Indication: SPINAL ANAESTHESIA
     Dosage: 5 MILLIGRAM (1 TOTAL)
     Route: 008
  7. CLONIDINE. [Suspect]
     Active Substance: CLONIDINE
     Indication: PRODUCT USED FOR UNKNOWN INDICATION
     Dosage: 8 MICROGRAM
     Route: 065

REACTIONS (4)
  - Areflexia [Recovered/Resolved]
  - Loss of consciousness [Recovered/Resolved]
  - Delayed recovery from anaesthesia [Recovered/Resolved]
  - Corneal reflex decreased [Recovered/Resolved]
